FAERS Safety Report 7002691-8 (Version None)
Quarter: 2010Q3

REPORT INFORMATION
  Report Type: 
  Country: None (occurrence: None)
  Receive Date: 20100920
  Receipt Date: 20071003
  Transmission Date: 20110219
  Serious: No
  Sender: FDA-Public Use
  Company Number: US-ASTRAZENECA-2009SE11557

PATIENT
  Age: 15283 Day
  Sex: Female

DRUGS (8)
  1. SEROQUEL [Suspect]
     Dosage: STRENGTH: 100 MG, 200 MG, 600 MG. DOSE: 1000 MG DAILY
     Route: 048
     Dates: start: 20020820
  2. DESYREL [Concomitant]
     Dates: start: 20020820
  3. INDERAL [Concomitant]
     Dates: start: 20020820
  4. EFFEXOR XR [Concomitant]
     Dates: start: 20020820
  5. TRILEPTAL [Concomitant]
     Dates: start: 20020820
  6. LITHIUM [Concomitant]
     Dates: start: 20021210
  7. RESTORIL [Concomitant]
     Route: 048
     Dates: start: 20021223
  8. REMERON [Concomitant]
     Dates: start: 20030225

REACTIONS (4)
  - ANTISOCIAL BEHAVIOUR [None]
  - BIPOLAR I DISORDER [None]
  - DEPRESSION [None]
  - DIABETES MELLITUS [None]
